FAERS Safety Report 12872539 (Version 1)
Quarter: 2016Q4

REPORT INFORMATION
  Report Type: Spontaneous
  Country: GB (occurrence: GB)
  Receive Date: 20161021
  Receipt Date: 20161021
  Transmission Date: 20170207
  Serious: Yes (Other)
  Sender: FDA-Public Use
  Company Number: GB-ACCORD-044906

PATIENT
  Age: 52 Year
  Sex: Male

DRUGS (8)
  1. ASPIRIN. [Concomitant]
     Active Substance: ASPIRIN
  2. PREDNISOLONE. [Concomitant]
     Active Substance: PREDNISOLONE
  3. SULFAMETHOXAZOLE/TRIMETHOPRIM [Interacting]
     Active Substance: SULFAMETHOXAZOLE\TRIMETHOPRIM
     Indication: DERMATOLOGIC EXAMINATION
     Dosage: STRENGTH: 160 MG/800 MG
     Route: 048
  4. ATORVASTATIN [Concomitant]
     Active Substance: ATORVASTATIN
  5. BISOPROLOL [Concomitant]
     Active Substance: BISOPROLOL
  6. FOLIC ACID. [Concomitant]
     Active Substance: FOLIC ACID
  7. RAMIPRIL. [Concomitant]
     Active Substance: RAMIPRIL
  8. METHOTREXATE. [Suspect]
     Active Substance: METHOTREXATE
     Indication: EAR, NOSE AND THROAT EXAMINATION
     Route: 048

REACTIONS (8)
  - Rash [Not Recovered/Not Resolved]
  - Labelled drug-drug interaction medication error [Unknown]
  - Eczema [Not Recovered/Not Resolved]
  - Eye swelling [Not Recovered/Not Resolved]
  - Excoriation [Not Recovered/Not Resolved]
  - Erythema [Not Recovered/Not Resolved]
  - Hypersensitivity [Not Recovered/Not Resolved]
  - Eye pruritus [Not Recovered/Not Resolved]

NARRATIVE: CASE EVENT DATE: 20160815
